FAERS Safety Report 24557903 (Version 1)
Quarter: 2024Q4

REPORT INFORMATION
  Report Type: Report from Study
  Country: US (occurrence: US)
  Receive Date: 20241028
  Receipt Date: 20241028
  Transmission Date: 20250114
  Serious: Yes (Other)
  Sender: NOVO NORDISK
  Company Number: US-NOVOPROD-1257332

PATIENT
  Age: 23 Year
  Sex: Female
  Weight: 102.04 kg

DRUGS (3)
  1. WEGOVY [Suspect]
     Active Substance: SEMAGLUTIDE
     Indication: Obesity
     Dosage: 0.25MG
     Route: 058
     Dates: start: 20240430
  2. WEGOVY [Suspect]
     Active Substance: SEMAGLUTIDE
     Dosage: 0.5 MG, QW
     Route: 058
     Dates: start: 20240527, end: 20240603
  3. LEVOTHYROXINE [Concomitant]
     Active Substance: LEVOTHYROXINE
     Indication: Product used for unknown indication
     Dosage: UNK
     Dates: start: 202407

REACTIONS (12)
  - Gastrooesophageal reflux disease [Not Recovered/Not Resolved]
  - Impaired gastric emptying [Recovering/Resolving]
  - Dehydration [Recovered/Resolved]
  - Oesophageal injury [Recovered/Resolved]
  - Chronic gastritis [Recovering/Resolving]
  - Urinary tract infection [Unknown]
  - Inflammation [Not Recovered/Not Resolved]
  - Sucrose intolerance [Not Recovered/Not Resolved]
  - Hiatus hernia [Unknown]
  - Tenderness [Not Recovered/Not Resolved]
  - Impaired work ability [Not Recovered/Not Resolved]
  - Constipation [Unknown]

NARRATIVE: CASE EVENT DATE: 20240507
